FAERS Safety Report 7870832-6 (Version None)
Quarter: 2011Q4

REPORT INFORMATION
  Report Type: 
  Country: None (occurrence: None)
  Receive Date: 20111029
  Receipt Date: 20110223
  Transmission Date: 20120403
  Serious: No
  Sender: FDA-Public Use
  Company Number: US-AMGEN-USASP2011007569

PATIENT
  Age: 50 Year
  Sex: Female

DRUGS (1)
  1. ENBREL [Suspect]
     Indication: ANKYLOSING SPONDYLITIS
     Dosage: 50 MG, QWK
     Dates: start: 20100129

REACTIONS (5)
  - MUSCLE SPASMS [None]
  - BLOOD PRESSURE INCREASED [None]
  - SLEEP DISORDER [None]
  - BURNING SENSATION [None]
  - INJECTION SITE PAIN [None]
